FAERS Safety Report 7561686-6 (Version None)
Quarter: 2011Q2

REPORT INFORMATION
  Report Type: 
  Country: None (occurrence: None)
  Receive Date: 20110621
  Receipt Date: 20100518
  Transmission Date: 20111010
  Serious: No
  Sender: FDA-Public Use
  Company Number: US-ASTRAZENECA-2010SE22881

PATIENT
  Age: 86 Year
  Sex: Male

DRUGS (6)
  1. AMLODIPINE [Concomitant]
  2. METOPROLOL TARTRATE [Concomitant]
  3. RHINOCORT [Suspect]
     Dosage: 1 SPRAY- TWO TIMES A DAY.
     Route: 045
     Dates: start: 20100517
  4. IRON SULFATETHIAMIN COMPOUND TAB [Concomitant]
  5. NIASPAN [Concomitant]
  6. POTASSIUM [Concomitant]

REACTIONS (1)
  - BLOOD PRESSURE INCREASED [None]
